FAERS Safety Report 8554113-3 (Version None)
Quarter: 2012Q3

REPORT INFORMATION
  Report Type: 
  Country: None (occurrence: None)
  Receive Date: 20120731
  Receipt Date: 20120726
  Transmission Date: 20120928
  Serious: Yes (Other)
  Sender: FDA-Public Use
  Company Number: PHEH2012US013281

PATIENT
  Sex: Female
  Weight: 153 kg

DRUGS (1)
  1. RECLAST [Suspect]
     Dosage: UNK UKN, ANNUALLY
     Route: 042

REACTIONS (2)
  - FEMUR FRACTURE [None]
  - FALL [None]
